FAERS Safety Report 8494483-8 (Version None)
Quarter: 2012Q3

REPORT INFORMATION
  Report Type: 
  Country: None (occurrence: None)
  Receive Date: 20120709
  Receipt Date: 20120702
  Transmission Date: 20120928
  Serious: Yes (Other)
  Sender: FDA-Public Use
  Company Number: US-SANOFI-AVENTIS-2012SA047258

PATIENT
  Age: 73 Year
  Sex: Female

DRUGS (3)
  1. SOLOSTAR [Suspect]
     Indication: DIABETES MELLITUS
  2. LANTUS [Suspect]
     Indication: DIABETES MELLITUS
     Dosage: DOSE:25 UNIT(S)
     Route: 058
  3. NOVOLOG [Concomitant]

REACTIONS (2)
  - HYPOGLYCAEMIA [None]
  - EYE HAEMORRHAGE [None]
